FAERS Safety Report 9401811 (Version 2)
Quarter: 2013Q3

REPORT INFORMATION
  Report Type: Spontaneous
  Country: US (occurrence: US)
  Receive Date: 20130716
  Receipt Date: 20130719
  Transmission Date: 20140515
  Serious: Yes (Other)
  Sender: FDA-Public Use
  Company Number: US-SANOFI-AVENTIS-2013SA070514

PATIENT
  Age: 60 Year
  Sex: Male

DRUGS (2)
  1. LANTUS [Suspect]
     Route: 065
  2. APIDRA [Suspect]

REACTIONS (4)
  - Neoplasm malignant [Unknown]
  - Diabetic neuropathy [Unknown]
  - Tinea pedis [Unknown]
  - Blood glucose fluctuation [Unknown]
